FAERS Safety Report 14779134 (Version 2)
Quarter: 2018Q2

REPORT INFORMATION
  Report Type: Spontaneous
  Country: US (occurrence: US)
  Receive Date: 20180419
  Receipt Date: 20180509
  Transmission Date: 20180711
  Serious: Yes (Hospitalization)
  Sender: FDA-Public Use
  Company Number: US-UNITED THERAPEUTICS-UNT-2018-005231

PATIENT
  Age: 66 Year
  Sex: Female
  Weight: 85.71 kg

DRUGS (4)
  1. OXYGEN. [Suspect]
     Active Substance: OXYGEN
     Indication: PRODUCT USED FOR UNKNOWN INDICATION
     Route: 065
  2. COUMADIN [Concomitant]
     Active Substance: WARFARIN SODIUM
     Indication: PRODUCT USED FOR UNKNOWN INDICATION
     Route: 065
  3. TRACLEER [Concomitant]
     Active Substance: BOSENTAN
     Indication: PRODUCT USED FOR UNKNOWN INDICATION
     Route: 065
  4. REMODULIN [Suspect]
     Active Substance: TREPROSTINIL
     Indication: PULMONARY ARTERIAL HYPERTENSION
     Dosage: 0.069 ?G/KG, CONTINUING
     Route: 041
     Dates: start: 20051222

REACTIONS (4)
  - Device dislocation [Unknown]
  - Fall [Recovered/Resolved with Sequelae]
  - Skin abrasion [Unknown]
  - Asthenia [Unknown]

NARRATIVE: CASE EVENT DATE: 20180412
